FAERS Safety Report 7027625-1 (Version None)
Quarter: 2010Q4

REPORT INFORMATION
  Report Type: 
  Country: None (occurrence: None)
  Receive Date: 20101004
  Receipt Date: 20100928
  Transmission Date: 20110411
  Serious: Yes (Death)
  Sender: FDA-Public Use
  Company Number: US-GILEAD-2010-0029473

PATIENT
  Sex: Male

DRUGS (11)
  1. LETAIRIS [Suspect]
     Indication: PULMONARY HYPERTENSION
     Route: 048
     Dates: start: 20090101
  2. DEMADEX [Concomitant]
  3. CARTIA XT [Concomitant]
  4. OXYGEN [Concomitant]
  5. AVODART [Concomitant]
  6. PREDNISONE [Concomitant]
  7. ATIVAN [Concomitant]
  8. ROXANOL [Concomitant]
  9. PAXIL [Concomitant]
  10. OMEPRAZOLE [Concomitant]
  11. FLOMAX [Concomitant]

REACTIONS (1)
  - DEATH [None]
